FAERS Safety Report 9893221 (Version 4)
Quarter: 2014Q2

REPORT INFORMATION
  Report Type: Spontaneous
  Country: FR (occurrence: FR)
  Receive Date: 20140213
  Receipt Date: 20140522
  Transmission Date: 20141212
  Serious: Yes (Other)
  Sender: FDA-Public Use
  Company Number: PHHY2014FR010066

PATIENT
  Age: 57 Year
  Sex: Female
  Weight: 74 kg

DRUGS (7)
  1. GILENYA [Suspect]
     Indication: MULTIPLE SCLEROSIS
     Dosage: 1 DF, QD
     Route: 048
     Dates: start: 20130611, end: 201310
  2. GILENYA [Suspect]
     Dosage: 1 DF, QOD
     Route: 048
     Dates: start: 201310
  3. NEURONTIN [Concomitant]
  4. LEXOMIL [Concomitant]
     Indication: ANXIETY
  5. KENZEN [Concomitant]
     Indication: HYPERTENSION
     Dosage: 16 MG, QD
     Dates: start: 2010, end: 201311
  6. KENZEN [Concomitant]
     Indication: HYPERTENSIVE CRISIS
     Dosage: 32 MG, QD
     Dates: start: 201311, end: 201401
  7. KENZEN [Concomitant]
     Dosage: 16 MG, QD

REACTIONS (6)
  - Hypertensive crisis [Recovered/Resolved]
  - Hypertension [Recovered/Resolved]
  - Fatigue [Not Recovered/Not Resolved]
  - Nervousness [Not Recovered/Not Resolved]
  - Aggression [Not Recovered/Not Resolved]
  - Prescribed underdose [Unknown]
